FAERS Safety Report 7539764-7 (Version None)
Quarter: 2011Q2

REPORT INFORMATION
  Report Type: 
  Country: None (occurrence: None)
  Receive Date: 20110609
  Receipt Date: 20110609
  Transmission Date: 20111010
  Serious: Yes (Other)
  Sender: FDA-Public Use
  Company Number: None

PATIENT
  Age: 57 Year
  Sex: Female
  Weight: 63 kg

DRUGS (14)
  1. LASIX [Concomitant]
  2. DILAUDID [Concomitant]
  3. CELLCEPT [Concomitant]
  4. VANCOMYCIN [Concomitant]
  5. BENADRYL [Concomitant]
  6. MICAFUNGIN [Concomitant]
  7. LANTUS [Concomitant]
  8. COLACE [Concomitant]
  9. PROGRAF [Concomitant]
  10. DIFLUCAN [Concomitant]
  11. PHENERGAN HCL [Concomitant]
  12. CYMBALTA [Suspect]
     Indication: NEURALGIA
     Dosage: 60MG DAILY PO
     Route: 048
     Dates: start: 20110602, end: 20110606
  13. BACTRIM [Concomitant]
  14. CACO3 [Concomitant]

REACTIONS (4)
  - DYSPHAGIA [None]
  - SPEECH DISORDER [None]
  - SWOLLEN TONGUE [None]
  - GINGIVAL PAIN [None]
